FAERS Safety Report 21156701 (Version 2)
Quarter: 2022Q3

REPORT INFORMATION
  Report Type: Spontaneous
  Country: US (occurrence: US)
  Receive Date: 20220801
  Receipt Date: 20220905
  Transmission Date: 20221027
  Serious: No
  Sender: FDA-Public Use
  Company Number: US-PADAGIS-21US004271

PATIENT

DRUGS (7)
  1. SULFACETAMIDE SODIUM [Suspect]
     Active Substance: SULFACETAMIDE SODIUM
     Indication: Roseola
     Dosage: THIN FILM, BID, TOPICALLY TO FACE
     Route: 061
     Dates: start: 2019, end: 20210311
  2. SULFACETAMIDE SODIUM [Suspect]
     Active Substance: SULFACETAMIDE SODIUM
     Dosage: THIN FILM, BID, TOPICALLY TO FACE
     Route: 061
     Dates: start: 20210312, end: 20210312
  3. NARDIL [Concomitant]
     Active Substance: PHENELZINE SULFATE
     Indication: Anxiety
     Dosage: UNK
     Route: 065
     Dates: start: 1991
  4. CLONAZEPAM [Concomitant]
     Active Substance: CLONAZEPAM
     Indication: Anxiety disorder
     Dosage: UNK
     Route: 065
     Dates: start: 1991
  5. FEXOFENADINE [Concomitant]
     Active Substance: FEXOFENADINE HYDROCHLORIDE
     Indication: Hypersensitivity
     Dosage: UNK
     Route: 065
  6. FLUTICASONE [Concomitant]
     Active Substance: FLUTICASONE
     Indication: Hypersensitivity
     Dosage: UNK
     Route: 065
  7. THYROXINE [Concomitant]
     Active Substance: LEVOTHYROXINE
     Indication: Thyroiditis
     Dosage: UNK
     Route: 065
     Dates: start: 2016

REACTIONS (2)
  - Drug ineffective for unapproved indication [Unknown]
  - Product colour issue [Unknown]
